FAERS Safety Report 5877847-8 (Version None)
Quarter: 2008Q3

REPORT INFORMATION
  Report Type: 
  Country: None (occurrence: None)
  Receive Date: 20080911
  Receipt Date: 20080829
  Transmission Date: 20090109
  Serious: Yes (Hospitalization)
  Sender: FDA-Public Use
  Company Number: SE-ELI_LILLY_AND_COMPANY-SE200809000089

PATIENT
  Sex: Female

DRUGS (10)
  1. CYMBALTA [Suspect]
     Indication: DEPRESSION
     Dosage: 60 MG, DAILY (1/D)
     Route: 048
     Dates: start: 20080601, end: 20080720
  2. NOVORAPID [Concomitant]
     Dosage: UNK, UNKNOWN
     Route: 065
  3. INDERAL [Concomitant]
     Dosage: 80 MG, UNK
     Route: 065
  4. ZOLPIDEM TARTRATE [Concomitant]
     Dosage: 5 MG, UNK
     Route: 065
  5. LYRICA [Concomitant]
     Indication: NEUROPATHY PERIPHERAL
     Dosage: 75 MG, UNK
     Route: 065
  6. SIMVASTATIN [Concomitant]
     Dosage: UNK, UNKNOWN
     Route: 065
  7. ALVEDON [Concomitant]
     Dosage: 500 MG, UNK
     Route: 065
  8. FURIX [Concomitant]
     Dosage: 40 MG, UNK
     Route: 065
  9. TRIOBE [Concomitant]
     Dosage: UNK, UNKNOWN
     Route: 065
  10. LANTUS [Concomitant]
     Dosage: UNK, UNKNOWN
     Route: 065

REACTIONS (4)
  - ANGIOEDEMA [None]
  - PALPITATIONS [None]
  - TRANSAMINASES INCREASED [None]
  - URINARY RETENTION [None]
